FAERS Safety Report 15699354 (Version 1)
Quarter: 2018Q4

REPORT INFORMATION
  Report Type: Spontaneous
  Country: US (occurrence: US)
  Receive Date: 20181207
  Receipt Date: 20181207
  Transmission Date: 20190205
  Serious: No
  Sender: FDA-Public Use
  Company Number: None

PATIENT
  Age: 56 Year
  Sex: Female

DRUGS (8)
  1. ATENOLOL 50 MG [Concomitant]
     Active Substance: ATENOLOL
     Dates: start: 20170220
  2. HUMIRA [Suspect]
     Active Substance: ADALIMUMAB
     Indication: PSORIATIC ARTHROPATHY
     Dosage: ?          OTHER FREQUENCY:EVERY 14 DAYS;?
     Route: 058
     Dates: start: 20171031, end: 20181207
  3. METHOTREXATE 2.5 MG [Concomitant]
     Active Substance: METHOTREXATE
     Dates: start: 20161227
  4. PRAVASTATIN 20 MG [Concomitant]
     Active Substance: PRAVASTATIN
     Dates: start: 20170420
  5. DULOXETINE 60 MG [Concomitant]
     Active Substance: DULOXETINE
     Dates: start: 20170302
  6. FOLIC ACID 1 MG [Concomitant]
     Dates: start: 20170331
  7. NORTRIPTYLINE 75 MG [Concomitant]
     Dates: start: 20170103
  8. XIIDRA [Concomitant]
     Active Substance: LIFITEGRAST
     Dates: start: 20170905

REACTIONS (1)
  - Trichorrhexis [None]

NARRATIVE: CASE EVENT DATE: 20181130
